FAERS Safety Report 9339032 (Version 1)
Quarter: 2013Q2

REPORT INFORMATION
  Report Type: Spontaneous
  Country: US (occurrence: None)
  Receive Date: 20130606
  Receipt Date: 20130606
  Transmission Date: 20140414
  Serious: Yes (Other)
  Sender: FDA-Public Use
  Company Number: None

PATIENT
  Age: 78 Year
  Sex: Female
  Weight: 53.52 kg

DRUGS (1)
  1. CHANTIX [Suspect]
     Dosage: DAY 1 TO 3 - 0.5MG- 1 A DAY?DAY 4 TO 7 - 0.5MG- 2 A DAY?DAY 8 ON - 1 MG- 2 A DAY
     Dates: start: 201011, end: 201012

REACTIONS (5)
  - Headache [None]
  - Lacrimation increased [None]
  - Drug ineffective [None]
  - Decreased interest [None]
  - Memory impairment [None]
